FAERS Safety Report 4586247-2 (Version None)
Quarter: 2005Q1

REPORT INFORMATION
  Report Type: 
  Country: None (occurrence: None)
  Receive Date: 20050125
  Receipt Date: 20041020
  Transmission Date: 20050727
  Serious: No
  Sender: FDA-Public Use
  Company Number: USA041081783

PATIENT
  Age: 70 Year
  Sex: Female

DRUGS (7)
  1. FORTEO [Suspect]
     Indication: OSTEOPOROSIS
     Dates: start: 20041008
  2. TENORMIN (ATENOLOL EG) [Concomitant]
  3. ACIPHEX [Concomitant]
  4. LIPITOR [Concomitant]
  5. SYNTHROID [Concomitant]
  6. MULTIVITAMIN [Concomitant]
  7. CALCIUM CARBONATE [Concomitant]

REACTIONS (4)
  - CHEST DISCOMFORT [None]
  - DYSPNOEA [None]
  - HYPERVENTILATION [None]
  - NAUSEA [None]
